FAERS Safety Report 7228182-7 (Version None)
Quarter: 2011Q1

REPORT INFORMATION
  Report Type: 
  Country: None (occurrence: None)
  Receive Date: 20110114
  Receipt Date: 20110111
  Transmission Date: 20110831
  Serious: Yes (Death)
  Sender: FDA-Public Use
  Company Number: GB-PFIZER INC-2011004396

PATIENT
  Age: 25 Year
  Sex: Male

DRUGS (18)
  1. VALGANCICLOVIR [Concomitant]
  2. CLOFAZIMINE [Concomitant]
  3. EFAVIRENZ [Concomitant]
     Indication: HIV INFECTION
  4. ETHAMBUTOL [Concomitant]
     Indication: ANTIBIOTIC PROPHYLAXIS
  5. RITONAVIR [Suspect]
     Indication: HIV INFECTION
  6. DARUNAVIR [Concomitant]
     Indication: HIV INFECTION
  7. AMIKACIN [Concomitant]
     Indication: TUBERCULOSIS
     Route: 042
  8. HEPARIN [Concomitant]
  9. CYCLOSERINE [Concomitant]
     Indication: TUBERCULOSIS
  10. PYRAZINAMIDE [Concomitant]
     Indication: TUBERCULOSIS
     Route: 042
  11. PYRAZINAMIDE [Concomitant]
     Indication: ANTIBIOTIC PROPHYLAXIS
  12. FLUCONAZOLE [Suspect]
     Indication: ORAL CANDIDIASIS
  13. ETHAMBUTOL [Concomitant]
     Indication: TUBERCULOSIS
     Route: 042
  14. ONDANSETRON [Suspect]
  15. PROTHIONAMIDE [Concomitant]
     Indication: TUBERCULOSIS
     Route: 042
  16. MOXIFLOXACIN [Suspect]
     Indication: TUBERCULOSIS
  17. LINEZOLID [Concomitant]
     Indication: TUBERCULOSIS
  18. TRUVADA [Concomitant]
     Indication: HIV INFECTION

REACTIONS (2)
  - ARRHYTHMIA [None]
  - SUDDEN DEATH [None]
